FAERS Safety Report 4758751-5 (Version None)
Quarter: 2005Q3

REPORT INFORMATION
  Report Type: 
  Country: None (occurrence: None)
  Receive Date: 20050831
  Receipt Date: 20050831
  Transmission Date: 20060218
  Serious: Yes (Death)
  Sender: FDA-Public Use
  Company Number: None

PATIENT
  Sex: Male
  Weight: 108.8633 kg

DRUGS (1)
  1. REMICADE [Suspect]

REACTIONS (10)
  - ATRIAL FIBRILLATION [None]
  - CROHN'S DISEASE [None]
  - EPSTEIN-BARR VIRUS ANTIBODY POSITIVE [None]
  - FEBRILE NEUTROPENIA [None]
  - HEPATIC FAILURE [None]
  - HISTOPLASMOSIS DISSEMINATED [None]
  - IMMUNOSUPPRESSION [None]
  - MULTI-ORGAN FAILURE [None]
  - NON-HODGKIN'S LYMPHOMA [None]
  - RENAL FAILURE [None]
